FAERS Safety Report 10769721 (Version 2)
Quarter: 2015Q1

REPORT INFORMATION
  Report Type: Spontaneous
  Country: BE (occurrence: BE)
  Receive Date: 20150206
  Receipt Date: 20150330
  Transmission Date: 20150721
  Serious: Yes (Life-Threatening, Other)
  Sender: FDA-Public Use
  Company Number: BE-PFIZER INC-2015044697

PATIENT
  Age: 72 Year
  Sex: Male
  Weight: 97 kg

DRUGS (6)
  1. EMCONCOR [Concomitant]
     Active Substance: BISOPROLOL FUMARATE
     Dosage: 2.5 MG, 1X/DAY
     Route: 048
     Dates: start: 201106
  2. D-CURE [Concomitant]
     Dosage: 1 DF, WEEKLY
     Route: 048
  3. SUTENT [Suspect]
     Active Substance: SUNITINIB MALATE
     Indication: RENAL CANCER METASTATIC
     Dosage: 50 MG, 1X/DAY
     Route: 048
     Dates: start: 20070226
  4. ELTHYRONE [Concomitant]
     Active Substance: LEVOTHYROXINE
     Dosage: 200 UNK, 1X/DAY
     Route: 048
     Dates: start: 2007
  5. COMBODART [Concomitant]
     Active Substance: DUTASTERIDE\TAMSULOSIN
     Dosage: 1 DF (0.5/0.4), UNK
     Route: 048
     Dates: start: 201105
  6. VITAMIN B12 [Concomitant]
     Active Substance: CYANOCOBALAMIN
     Dosage: 1 MG, MONTHLY
     Route: 048

REACTIONS (4)
  - Chronic leukaemia [Not Recovered/Not Resolved]
  - Leukostasis syndrome [Not Recovered/Not Resolved]
  - Second primary malignancy [Not Recovered/Not Resolved]
  - Myelocytosis [Not Recovered/Not Resolved]

NARRATIVE: CASE EVENT DATE: 20140922
